FAERS Safety Report 8851823 (Version 2)
Quarter: 2012Q4

REPORT INFORMATION
  Report Type: 
  Country: US (occurrence: US)
  Receive Date: 20121022
  Receipt Date: 20121214
  Transmission Date: 20130627
  Serious: No
  Sender: FDA-Public Use
  Company Number: US-PFIZER INC-2012260730

PATIENT
  Sex: Male

DRUGS (2)
  1. LYRICA [Suspect]
     Indication: PAIN LEGS
     Dosage: 600 mg, 1x/day at 6PM
  2. LYRICA [Suspect]
     Indication: DIABETIC NEUROPATHY

REACTIONS (4)
  - Drug effect incomplete [Unknown]
  - Musculoskeletal pain [Unknown]
  - Pain in extremity [Unknown]
  - Burning sensation [Unknown]
